FAERS Safety Report 7088490-X (Version None)
Quarter: 2010Q4

REPORT INFORMATION
  Report Type: 
  Country: None (occurrence: None)
  Receive Date: 20101108
  Receipt Date: 20101101
  Transmission Date: 20110411
  Serious: Yes (Other)
  Sender: FDA-Public Use
  Company Number: US-ROCHE-738525

PATIENT
  Age: 16 Year
  Sex: Male

DRUGS (1)
  1. TAMIFLU [Suspect]
     Route: 065
     Dates: start: 20101020

REACTIONS (2)
  - CONFUSIONAL STATE [None]
  - PARANOIA [None]
